FAERS Safety Report 19084654 (Version 1)
Quarter: 2021Q2

REPORT INFORMATION
  Report Type: Other
  Country: IT (occurrence: IT)
  Receive Date: 20210401
  Receipt Date: 20210401
  Transmission Date: 20210717
  Serious: Yes (Other)
  Sender: FDA-Public Use
  Company Number: IT-COLLEGIUM PHARMACEUTICAL, INC.-2021CGM00336

PATIENT
  Age: 91 Year
  Sex: Female

DRUGS (12)
  1. ZYLORIC [Concomitant]
     Active Substance: ALLOPURINOL
  2. ACIDO ACETILSALICILICO MYLAN [Concomitant]
  3. TAPENTADOL [Suspect]
     Active Substance: TAPENTADOL
     Indication: PRODUCT USED FOR UNKNOWN INDICATION
     Route: 048
  4. KCL?RETARD [Concomitant]
     Active Substance: POTASSIUM CHLORIDE
  5. OMEPRAZOL ZENTIVA [Concomitant]
     Active Substance: OMEPRAZOLE
  6. ALTIAZEM [Concomitant]
     Active Substance: DILTIAZEM HYDROCHLORIDE
  7. LIXIANA [Concomitant]
     Active Substance: EDOXABAN TOSYLATE
  8. LUVION [Concomitant]
  9. REGALBAX [Concomitant]
  10. FOLIFILL [Concomitant]
  11. DOBETIN [Concomitant]
  12. LASIX [Suspect]
     Active Substance: FUROSEMIDE

REACTIONS (4)
  - Respiratory failure [Recovered/Resolved]
  - Miosis [Recovered/Resolved]
  - Somnolence [Recovered/Resolved]
  - Apnoea [Recovered/Resolved]

NARRATIVE: CASE EVENT DATE: 20200825
